FAERS Safety Report 4859676-7 (Version None)
Quarter: 2005Q4

REPORT INFORMATION
  Report Type: 
  Country: None (occurrence: None)
  Receive Date: 20051219
  Receipt Date: 20050804
  Transmission Date: 20060501
  Serious: Yes (Hospitalization, Disabling)
  Sender: FDA-Public Use
  Company Number: FR-SOLVAY-00305002522

PATIENT
  Age: 2 Month
  Sex: Male

DRUGS (2)
  1. FLUVOXAMINE MALEATE [Suspect]
     Indication: DRUG EXPOSURE DURING PREGNANCY
     Dosage: DAILY DOSE: 100 MILLIGRAM(S)
     Route: 064
  2. FLUVOXAMINE MALEATE [Suspect]
     Dosage: DAILY DOSE:  UNKNOWN
     Route: 050

REACTIONS (7)
  - AGITATION [None]
  - CRYING [None]
  - DRUG WITHDRAWAL SYNDROME [None]
  - FACIAL DYSMORPHISM [None]
  - HYPERTONIA [None]
  - INGUINAL HERNIA [None]
  - PAIN [None]
